FAERS Safety Report 4718963-3 (Version None)
Quarter: 2005Q3

REPORT INFORMATION
  Report Type: 
  Country: None (occurrence: None)
  Receive Date: 20050719
  Receipt Date: 20050707
  Transmission Date: 20060218
  Serious: Yes (Hospitalization, Disabling)
  Sender: FDA-Public Use
  Company Number: 2005098781

PATIENT
  Age: 53 Year
  Sex: Male

DRUGS (1)
  1. LATANOPROST [Suspect]
     Indication: GLAUCOMA
     Dosage: (1 IN 1 D), TOPICAL
     Route: 061
     Dates: start: 20050405

REACTIONS (1)
  - VISUAL ACUITY REDUCED [None]
